FAERS Safety Report 20560518 (Version 1)
Quarter: 2022Q1

REPORT INFORMATION
  Report Type: Spontaneous
  Country: US (occurrence: None)
  Receive Date: 20220304
  Receipt Date: 20220304
  Transmission Date: 20220423
  Serious: No
  Sender: FDA-Public Use
  Company Number: None

PATIENT
  Age: 42 Year
  Sex: Female

DRUGS (1)
  1. SUMATRIPTAN [Suspect]
     Active Substance: SUMATRIPTAN
     Dosage: FREQUENCY : AS NEEDED;?
     Route: 048

REACTIONS (4)
  - Chest pain [None]
  - Dyspnoea [None]
  - Pain in jaw [None]
  - Chest discomfort [None]

NARRATIVE: CASE EVENT DATE: 20220304
